FAERS Safety Report 4291383-4 (Version None)
Quarter: 2004Q1

REPORT INFORMATION
  Report Type: 
  Country: None (occurrence: None)
  Receive Date: 20040126
  Receipt Date: 20031029
  Transmission Date: 20041129
  Serious: No
  Sender: FDA-Public Use
  Company Number: USA031051167

PATIENT
  Age: 73 Year
  Sex: Female
  Weight: 77 kg

DRUGS (1)
  1. FORTEO [Suspect]
     Indication: FRACTURED SACRUM
     Dates: start: 20031009

REACTIONS (2)
  - INJECTION SITE BURNING [None]
  - INJECTION SITE HAEMORRHAGE [None]
